FAERS Safety Report 6328539-2 (Version None)
Quarter: 2009Q3

REPORT INFORMATION
  Report Type: 
  Country: None (occurrence: None)
  Receive Date: 20090826
  Receipt Date: 20070615
  Transmission Date: 20100115
  Serious: Yes (Other)
  Sender: FDA-Public Use
  Company Number: US-ASTRAZENECA-2006UW25429

PATIENT
  Age: 777 Month
  Sex: Female
  Weight: 81.6 kg

DRUGS (11)
  1. SEROQUEL [Suspect]
     Indication: MENTAL DISORDER
     Dosage: 25-200 MG
     Route: 048
     Dates: start: 20010601, end: 20060101
  2. SEROQUEL [Suspect]
     Indication: SLEEP DISORDER
     Dosage: 25-200 MG
     Route: 048
     Dates: start: 20010601, end: 20060101
  3. SEROQUEL [Suspect]
     Indication: INSOMNIA
     Dosage: 25-200 MG
     Route: 048
     Dates: start: 20010601, end: 20060101
  4. SEROQUEL [Suspect]
     Indication: AFFECTIVE DISORDER
     Dosage: 25-200 MG
     Route: 048
     Dates: start: 20010601, end: 20060101
  5. RISPERDAL [Suspect]
     Dates: end: 20060101
  6. ZYPREXA [Suspect]
     Dates: start: 20010201, end: 20010401
  7. ZYPREXA [Suspect]
     Dates: start: 20010227, end: 20010515
  8. PROTONIX [Concomitant]
     Dates: start: 20050303
  9. NIFEDIPINE [Concomitant]
     Indication: BLOOD PRESSURE
     Dates: start: 20050303
  10. ATENOLOL [Concomitant]
     Dates: start: 20050303
  11. GEODON [Concomitant]
     Dates: start: 20050101

REACTIONS (5)
  - DIABETES MELLITUS [None]
  - DIABETES MELLITUS INADEQUATE CONTROL [None]
  - DIABETIC EYE DISEASE [None]
  - DIABETIC NEUROPATHY [None]
  - TYPE 2 DIABETES MELLITUS [None]
